FAERS Safety Report 17793777 (Version 4)
Quarter: 2020Q3

REPORT INFORMATION
  Report Type: Spontaneous
  Country: US (occurrence: US)
  Receive Date: 20200515
  Receipt Date: 20200724
  Transmission Date: 20201102
  Serious: No
  Sender: FDA-Public Use
  Company Number: US-GLAXOSMITHKLINE-US2020AMR081645

PATIENT
  Sex: Female

DRUGS (2)
  1. ZEJULA [Suspect]
     Active Substance: NIRAPARIB
     Indication: FALLOPIAN TUBE CANCER
     Dosage: 100 MG, QD
     Dates: start: 20200504
  2. ZEJULA [Suspect]
     Active Substance: NIRAPARIB
     Dosage: 100 MG (3 TABLETS DAILY)
     Dates: start: 20200508, end: 20200722

REACTIONS (5)
  - Incorrect dose administered [Unknown]
  - Anxiety [Recovering/Resolving]
  - Alanine aminotransferase increased [Unknown]
  - Aspartate aminotransferase increased [Unknown]
  - Nausea [Recovering/Resolving]
